FAERS Safety Report 19958569 (Version 1)
Quarter: 2021Q4

REPORT INFORMATION
  Report Type: Spontaneous
  Country: MT (occurrence: MT)
  Receive Date: 20211015
  Receipt Date: 20211015
  Transmission Date: 20220303
  Serious: Yes (Other)
  Sender: FDA-Public Use
  Company Number: MT-HQ SPECIALTY-MT-2021INT000183

PATIENT
  Age: 11 Year
  Sex: Male

DRUGS (2)
  1. MEROPENEM [Suspect]
     Active Substance: MEROPENEM
     Indication: Klebsiella infection
     Dosage: 40 MG/KG, TID
     Route: 042
  2. TEICOPLANIN [Concomitant]
     Active Substance: TEICOPLANIN
     Indication: Klebsiella infection
     Dosage: UNK
     Route: 042

REACTIONS (1)
  - Thrombocytopenia [Recovered/Resolved]
